FAERS Safety Report 5076083-5 (Version None)
Quarter: 2006Q3

REPORT INFORMATION
  Report Type: 
  Country: None (occurrence: None)
  Receive Date: 20060809
  Receipt Date: 20051212
  Transmission Date: 20061208
  Serious: No
  Sender: FDA-Public Use
  Company Number: US-AMGEN-KDL161311

PATIENT
  Sex: Female
  Weight: 80.4 kg

DRUGS (2)
  1. PROCRIT [Suspect]
     Indication: RENAL FAILURE CHRONIC
     Route: 058
     Dates: start: 20020717, end: 20051216
  2. ALLOPURINOL [Concomitant]

REACTIONS (2)
  - THERAPEUTIC RESPONSE DECREASED [None]
  - TIBIA FRACTURE [None]
